FAERS Safety Report 7156033-8 (Version None)
Quarter: 2010Q4

REPORT INFORMATION
  Report Type: 
  Country: None (occurrence: None)
  Receive Date: 20101214
  Receipt Date: 20101208
  Transmission Date: 20110411
  Serious: Yes (Other)
  Sender: FDA-Public Use
  Company Number: DE-SANOFI-AVENTIS-2010SA074239

PATIENT
  Age: 53 Year
  Sex: Male

DRUGS (1)
  1. MULTAQ [Suspect]
     Indication: ATRIAL FIBRILLATION
     Route: 048
     Dates: start: 20100101, end: 20101101

REACTIONS (4)
  - ATRIAL FIBRILLATION [None]
  - ECZEMA [None]
  - RASH [None]
  - SKIN DISORDER [None]
